FAERS Safety Report 9304362 (Version 2)
Quarter: 2013Q4

REPORT INFORMATION
  Report Type: Report from Study
  Country: GB (occurrence: GB)
  Receive Date: 20130522
  Receipt Date: 20131017
  Transmission Date: 20140711
  Serious: Yes (Other)
  Sender: FDA-Public Use
  Company Number: GB-VERTEX PHARMACEUTICALS INC-2013-002329

PATIENT
  Age: 47 Year
  Sex: Male
  Weight: 99 kg

DRUGS (7)
  1. VX-950 (TELAPREVIR) [Suspect]
     Indication: HEPATITIS C
     Dosage: 750 MG, TID
     Route: 048
     Dates: start: 20130201, end: 20130425
  2. PEG INTERFERON [Suspect]
     Indication: HEPATITIS C
     Dosage: DOSAGE FORM: INJECTION
     Route: 058
     Dates: start: 20130201
  3. RIBAVIRIN [Suspect]
     Indication: HEPATITIS C
     Dosage: DOSAGE FORM: TABLETS
     Route: 048
     Dates: start: 20130201
  4. OMEPRAZOLE [Concomitant]
     Indication: GASTROOESOPHAGEAL REFLUX DISEASE
     Dosage: DOSAGE FORM: UNKNOWN
     Route: 065
  5. DOMPERIDONE [Concomitant]
     Indication: NAUSEA
     Dosage: DOSAGE FORM: UNKNOWN
     Route: 065
     Dates: start: 20130227
  6. HYDROMOL [Concomitant]
     Dosage: 100 G, UNK
     Route: 061
     Dates: start: 20130227
  7. BETNOVATE [Concomitant]
     Dosage: UNK
     Dates: start: 20130227

REACTIONS (11)
  - Folliculitis [Not Recovered/Not Resolved]
  - Rash [Not Recovered/Not Resolved]
  - Chest discomfort [Recovered/Resolved]
  - Hypogeusia [Not Recovered/Not Resolved]
  - Candida infection [Not Recovered/Not Resolved]
  - Dyspnoea [Unknown]
  - Mouth ulceration [Unknown]
  - Lethargy [Not Recovered/Not Resolved]
  - Cough [Not Recovered/Not Resolved]
  - Nausea [Not Recovered/Not Resolved]
  - Pruritus [Not Recovered/Not Resolved]
